FAERS Safety Report 8153896-4 (Version None)
Quarter: 2012Q1

REPORT INFORMATION
  Report Type: 
  Country: None (occurrence: None)
  Receive Date: 20120221
  Receipt Date: 20120209
  Transmission Date: 20120608
  Serious: Yes (Hospitalization, Other)
  Sender: FDA-Public Use
  Company Number: US-ELI_LILLY_AND_COMPANY-US201111005377

PATIENT
  Sex: Female

DRUGS (14)
  1. BISOPROLOL FUMARATE [Concomitant]
     Dosage: 0.5 MG, QD
  2. ATENOLOL [Concomitant]
     Dosage: UNK, QD
  3. FORTEO [Suspect]
     Dosage: 20 UG, QD
     Route: 065
  4. OXYCODONE HCL [Concomitant]
     Dosage: UNK, AS NEEDED BID
  5. VITAMIN B-12 [Concomitant]
  6. ASPIRIN [Concomitant]
  7. FORTEO [Suspect]
     Indication: OSTEOPOROSIS
     Dosage: 20 UG, QD
     Route: 065
     Dates: start: 20110901
  8. FORTEO [Suspect]
     Dosage: 20 UG, QD
     Route: 065
  9. FORTEO [Suspect]
     Dosage: 20 UG, QD
     Route: 065
  10. PREDNISONE [Concomitant]
     Dosage: 6 DF, OTHER
  11. CALCIUM [Concomitant]
     Dosage: 600 MG, UNKNOWN
  12. SIMVASTATIN [Concomitant]
     Dosage: UNK, QD
  13. FORTEO [Suspect]
     Dosage: 20 UG, QD
     Route: 065
  14. ANABOLIC STEROIDS [Concomitant]

REACTIONS (12)
  - PNEUMONIA [None]
  - SPINAL FRACTURE [None]
  - HYPERSENSITIVITY [None]
  - OXYGEN SATURATION DECREASED [None]
  - INJECTION SITE HAEMATOMA [None]
  - SURGERY [None]
  - MYOCARDIAL INFARCTION [None]
  - BACK DISORDER [None]
  - MULTIPLE FRACTURES [None]
  - MUSCULOSKELETAL PAIN [None]
  - CONFUSIONAL STATE [None]
  - DYSPHONIA [None]
